FAERS Safety Report 10356821 (Version 1)
Quarter: 2014Q3

REPORT INFORMATION
  Report Type: Spontaneous
  Country: US (occurrence: None)
  Receive Date: 20140730
  Receipt Date: 20140730
  Transmission Date: 20150326
  Serious: Yes (Life-Threatening, Hospitalization, Other)
  Sender: FDA-Public Use
  Company Number: None

PATIENT
  Age: 86 Year
  Sex: Female
  Weight: 64.5 kg

DRUGS (12)
  1. LOSARTAN [Concomitant]
     Active Substance: LOSARTAN
  2. PROTONIX [Concomitant]
     Active Substance: PANTOPRAZOLE SODIUM
  3. ELIQUIS [Suspect]
     Active Substance: APIXABAN
     Indication: CEREBROVASCULAR ACCIDENT PROPHYLAXIS
     Route: 048
     Dates: start: 20140417, end: 20140728
  4. AMLODIPINE [Concomitant]
     Active Substance: AMLODIPINE BESYLATE
  5. POTASSIUM CHLORIDE. [Concomitant]
     Active Substance: POTASSIUM CHLORIDE
  6. ELIQUIS [Suspect]
     Active Substance: APIXABAN
     Indication: ATRIAL FIBRILLATION
     Route: 048
     Dates: start: 20140417, end: 20140728
  7. ATENOLOL. [Concomitant]
     Active Substance: ATENOLOL
  8. LYRICA [Concomitant]
     Active Substance: PREGABALIN
  9. FOLIC ACID. [Concomitant]
     Active Substance: FOLIC ACID
  10. NIACIN. [Concomitant]
     Active Substance: NIACIN
  11. FUROSEMIDE. [Concomitant]
     Active Substance: FUROSEMIDE
  12. ASPIRIN. [Concomitant]
     Active Substance: ASPIRIN

REACTIONS (2)
  - Unresponsive to stimuli [None]
  - Haemorrhagic stroke [None]

NARRATIVE: CASE EVENT DATE: 20140728
